FAERS Safety Report 25724840 (Version 1)
Quarter: 2025Q3

REPORT INFORMATION
  Report Type: Spontaneous
  Country: US (occurrence: US)
  Receive Date: 20250826
  Receipt Date: 20250826
  Transmission Date: 20251021
  Serious: Yes (Other)
  Sender: Kenvue
  Company Number: US-KENVUE-20250805934

PATIENT
  Age: 41 Year
  Sex: Female

DRUGS (1)
  1. VISINE RED EYE TOTAL COMFORT MULTI-SYMPTOM [Suspect]
     Active Substance: POLYETHYLENE GLYCOL 400\TETRAHYDROZOLINE HYDROCHLORIDE\ZINC SULFATE
     Indication: Dry eye
     Dosage: 4 DROP, TWICE A DAY
     Route: 065
     Dates: start: 20241117

REACTIONS (2)
  - Chemical burns of eye [Not Recovered/Not Resolved]
  - Incorrect dose administered [Unknown]

NARRATIVE: CASE EVENT DATE: 20241117
